FAERS Safety Report 15715499 (Version 1)
Quarter: 2018Q4

REPORT INFORMATION
  Report Type: Spontaneous
  Country: DK (occurrence: DK)
  Receive Date: 20181212
  Receipt Date: 20181212
  Transmission Date: 20190205
  Serious: Yes (Other)
  Sender: FDA-Public Use
  Company Number: DK-ENDO PHARMACEUTICALS INC-2018-041015

PATIENT
  Age: 45 Year
  Sex: Male

DRUGS (24)
  1. TESTIM [Suspect]
     Active Substance: TESTOSTERONE
     Dosage: UNK UNKNOWN, UNKNOWN
     Route: 065
  2. AVEED [Suspect]
     Active Substance: TESTOSTERONE UNDECANOATE
     Indication: LIBIDO DECREASED
     Dosage: UNK UNKNOWN, UNKNOWN
     Route: 030
     Dates: start: 20180704
  3. AVEED [Suspect]
     Active Substance: TESTOSTERONE UNDECANOATE
     Indication: ERECTILE DYSFUNCTION
     Dosage: UNK UNKNOWN, UNKNOWN
     Route: 030
  4. TESTOGEL [Suspect]
     Active Substance: TESTOSTERONE
     Indication: ERECTILE DYSFUNCTION
     Dosage: UNK UNKNOWN, UNKNOWN
     Route: 065
  5. TESTOGEL [Suspect]
     Active Substance: TESTOSTERONE
     Indication: DEPRESSED MOOD
  6. TESTIM [Suspect]
     Active Substance: TESTOSTERONE
     Indication: ERECTILE DYSFUNCTION
     Dosage: UNK UNKNOWN, UNKNOWN
     Route: 065
  7. FORTESTA [Suspect]
     Active Substance: TESTOSTERONE
     Indication: DEPRESSED MOOD
     Dosage: UNK UNKNOWN, UNKNOWN
     Route: 065
  8. AVEED [Suspect]
     Active Substance: TESTOSTERONE UNDECANOATE
     Indication: DEPRESSED MOOD
     Dosage: UNK UNKNOWN, UNKNOWN
     Route: 030
  9. TESTIM [Suspect]
     Active Substance: TESTOSTERONE
     Indication: FATIGUE
     Dosage: UNK UNKNOWN, UNKNOWN
     Route: 065
  10. TESTOGEL [Suspect]
     Active Substance: TESTOSTERONE
     Indication: LIBIDO DECREASED
     Dosage: UNK UNKNOWN, UNKNOWN
     Route: 065
     Dates: start: 20160520, end: 20170701
  11. TESTIM [Suspect]
     Active Substance: TESTOSTERONE
     Indication: LIBIDO DECREASED
     Dosage: UNK UNKNOWN, UNKNOWN
     Route: 065
  12. TESTIM [Suspect]
     Active Substance: TESTOSTERONE
     Dosage: UNK UNKNOWN, UNKNOWN
     Route: 065
  13. TESTIM [Suspect]
     Active Substance: TESTOSTERONE
     Dosage: UNK UNKNOWN, UNKNOWN
     Route: 065
     Dates: start: 20160520, end: 20170701
  14. FORTESTA [Suspect]
     Active Substance: TESTOSTERONE
     Indication: LIBIDO DECREASED
     Dosage: UNK UNKNOWN, UNKNOWN
     Route: 065
  15. FORTESTA [Suspect]
     Active Substance: TESTOSTERONE
     Indication: ERECTILE DYSFUNCTION
     Dosage: UNK UNKNOWN, UNKNOWN
     Route: 065
  16. TESTIM [Suspect]
     Active Substance: TESTOSTERONE
     Indication: LIBIDO DECREASED
     Dosage: UNK UNKNOWN, UNKNOWN
     Route: 065
  17. TESTIM [Suspect]
     Active Substance: TESTOSTERONE
     Indication: ERECTILE DYSFUNCTION
     Dosage: UNK UNKNOWN, UNKNOWN
     Route: 065
  18. TESTIM [Suspect]
     Active Substance: TESTOSTERONE
     Indication: DEPRESSED MOOD
     Dosage: UNK UNKNOWN, UNKNOWN
     Route: 065
  19. AVEED [Suspect]
     Active Substance: TESTOSTERONE UNDECANOATE
     Indication: FATIGUE
     Dosage: UNK UNKNOWN, UNKNOWN
     Route: 030
     Dates: start: 20180201
  20. TESTOGEL [Suspect]
     Active Substance: TESTOSTERONE
     Indication: FATIGUE
  21. TESTIM [Suspect]
     Active Substance: TESTOSTERONE
     Dosage: UNK UNKNOWN, UNKNOWN
     Route: 065
     Dates: start: 20171116
  22. TESTIM [Suspect]
     Active Substance: TESTOSTERONE
     Indication: FATIGUE
     Dosage: UNK UNKNOWN, UNKNOWN
     Route: 065
     Dates: start: 20161218
  23. TESTIM [Suspect]
     Active Substance: TESTOSTERONE
     Indication: DEPRESSED MOOD
     Dosage: UNK UNKNOWN, UNKNOWN
     Route: 065
  24. FORTESTA [Suspect]
     Active Substance: TESTOSTERONE
     Indication: FATIGUE
     Dosage: UNK UNKNOWN, UNKNOWN
     Route: 065
     Dates: start: 20171116

REACTIONS (2)
  - Off label use [Unknown]
  - Azoospermia [Unknown]

NARRATIVE: CASE EVENT DATE: 201808
